FAERS Safety Report 9748108 (Version 4)
Quarter: 2014Q2

REPORT INFORMATION
  Report Type: Spontaneous
  Country: US (occurrence: US)
  Receive Date: 20131212
  Receipt Date: 20140508
  Transmission Date: 20141212
  Serious: Yes (Death)
  Sender: FDA-Public Use
  Company Number: US-PFIZER INC-2013351550

PATIENT
  Age: 62 Year
  Sex: Male
  Weight: 95.69 kg

DRUGS (11)
  1. SUTENT [Suspect]
     Dosage: 50 MG QD, CYCLIC (28 DAYS ON / 14 DAYS OFF)
     Route: 048
     Dates: start: 20131121
  2. SUTENT [Suspect]
     Dosage: 50 MG, CYCLIC DAILY SECOND CYCLE
     Dates: start: 20140103
  3. SUTENT [Suspect]
     Dosage: UNK, CYCLIC (DAILY 4 WEEKS ON, 2 WEEKS OFF)
  4. METOPROLOL [Concomitant]
     Dosage: UNK
  5. PLAVIX [Concomitant]
     Dosage: UNK
  6. COMPAZINE [Concomitant]
     Dosage: UNK
  7. LISINOPRIL [Concomitant]
     Dosage: UNK
  8. ASPIRIN [Concomitant]
     Dosage: 325 MG, UNK
  9. SIMVASTATIN [Concomitant]
     Dosage: UNK
  10. NTG [Concomitant]
     Indication: CHEST PAIN
     Dosage: UNK, AS NEEDED
  11. LASIX [Concomitant]
     Dosage: UNK

REACTIONS (4)
  - Death [Fatal]
  - Rash [Not Recovered/Not Resolved]
  - Nausea [Recovered/Resolved]
  - Petechiae [Unknown]
